FAERS Safety Report 8876406 (Version 2)
Quarter: 2013Q1

REPORT INFORMATION
  Report Type: Report from Study
  Country: US (occurrence: US)
  Receive Date: 20121031
  Receipt Date: 20130104
  Transmission Date: 20140127
  Serious: No
  Sender: FDA-Public Use
  Company Number: US-VERTEX PHARMACEUTICAL INC.-2012-023453

PATIENT
  Age: 58 Year
  Sex: Male
  Weight: 66 kg

DRUGS (5)
  1. VX-950 (TELAPREVIR) [Suspect]
     Indication: HEPATITIS C
     Dosage: 750 MG, TID
     Route: 048
     Dates: start: 20121012
  2. PEGASYS [Suspect]
     Indication: HEPATITIS C
     Dosage: 180 ?G, QW
     Route: 058
     Dates: start: 20121012
  3. RIBASPHERE [Suspect]
     Indication: HEPATITIS C
     Dosage: 400 MG, BID
     Route: 048
     Dates: start: 20121012
  4. FLUOXETINE HCL [Concomitant]
     Dosage: 40 MG, QD
     Route: 048
  5. DEXILANT [Concomitant]
     Dosage: 60 MG, QD
     Route: 048

REACTIONS (5)
  - Influenza like illness [Unknown]
  - Rash [Unknown]
  - Anorectal discomfort [Unknown]
  - Nausea [Unknown]
  - Vomiting [Unknown]
